FAERS Safety Report 9216548 (Version 1)
Quarter: 2013Q2

REPORT INFORMATION
  Report Type: Spontaneous
  Country: US (occurrence: None)
  Receive Date: 20130403
  Receipt Date: 20130403
  Transmission Date: 20140414
  Serious: Yes (Hospitalization)
  Sender: FDA-Public Use
  Company Number: 147114

PATIENT
  Age: 10 Month
  Sex: Male

DRUGS (1)
  1. CLADRIBINE [Suspect]
     Dosage: 2.8MG/500ML INFUSION VIA BROVIAC CA
     Dates: start: 20130321

REACTIONS (5)
  - Mediastinal effusion [None]
  - Pleural effusion [None]
  - Respiratory distress [None]
  - Device deployment issue [None]
  - Incorrect route of drug administration [None]
